FAERS Safety Report 24152919 (Version 2)
Quarter: 2024Q3

REPORT INFORMATION
  Report Type: Report from Study
  Country: BR (occurrence: BR)
  Receive Date: 20240730
  Receipt Date: 20240805
  Transmission Date: 20241017
  Serious: Yes (Hospitalization)
  Sender: ALNYLAM PHARMACEUTICALS
  Company Number: BR-ALNYLAM PHARMACEUTICALS, INC.-ALN-2024-004160

PATIENT

DRUGS (2)
  1. GIVLAARI [Suspect]
     Active Substance: GIVOSIRAN SODIUM
     Indication: Porphyria acute
     Dosage: 205 MILLIGRAM, MONTHLY (PRESENTATION: 189 MG/ML, CONTINUOUS USE)
     Route: 058
     Dates: start: 20230316, end: 20230316
  2. GIVLAARI [Suspect]
     Active Substance: GIVOSIRAN SODIUM
     Dosage: UNK UNK, MONTHLY
     Route: 058
     Dates: start: 20240620, end: 20240620

REACTIONS (4)
  - Depression [Unknown]
  - Menstrual disorder [Unknown]
  - Asthenia [Unknown]
  - Therapy interrupted [Unknown]

NARRATIVE: CASE EVENT DATE: 20240708
